FAERS Safety Report 23689956 (Version 1)
Quarter: 2024Q2

REPORT INFORMATION
  Report Type: Spontaneous
  Country: US (occurrence: US)
  Receive Date: 20240401
  Receipt Date: 20240401
  Transmission Date: 20240716
  Serious: Yes (Hospitalization, Other)
  Sender: FDA-Public Use
  Company Number: US-MACLEODS PHARMACEUTICALS US LTD-MAC2024046535

PATIENT

DRUGS (1)
  1. OLANZAPINE [Suspect]
     Active Substance: OLANZAPINE
     Indication: Product used for unknown indication
     Dosage: UNK
     Route: 065

REACTIONS (6)
  - Mental status changes [Recovering/Resolving]
  - Hallucination [Recovering/Resolving]
  - Anticholinergic syndrome [Recovering/Resolving]
  - Delirium [Recovering/Resolving]
  - Parkinsonism [Recovering/Resolving]
  - Cerebral ischaemia [Recovering/Resolving]
